FAERS Safety Report 4784802-8 (Version None)
Quarter: 2005Q3

REPORT INFORMATION
  Report Type: 
  Country: None (occurrence: None)
  Receive Date: 20050928
  Receipt Date: 20050915
  Transmission Date: 20060218
  Serious: Yes (Disabling, Other)
  Sender: FDA-Public Use
  Company Number: 2005132011

PATIENT
  Sex: Female

DRUGS (1)
  1. DETROL LA [Suspect]
     Indication: ILL-DEFINED DISORDER

REACTIONS (6)
  - ARTHRALGIA [None]
  - BACK PAIN [None]
  - COLON OPERATION [None]
  - DISABILITY [None]
  - HYPERTENSION [None]
  - HYPERTONIC BLADDER [None]
